FAERS Safety Report 21254997 (Version 10)
Quarter: 2024Q3

REPORT INFORMATION
  Report Type: Report from Study
  Country: US (occurrence: US)
  Receive Date: 20220825
  Receipt Date: 20240717
  Transmission Date: 20241016
  Serious: Yes (Hospitalization, Other)
  Sender: TAKEDA
  Company Number: US-TAKEDA-US201843658

PATIENT
  Age: 57 Year
  Sex: Female

DRUGS (6)
  1. LANADELUMAB [Suspect]
     Active Substance: LANADELUMAB
     Indication: Hereditary angioedema
     Dosage: 300 MILLIGRAM, Q2WEEKS
     Route: 058
     Dates: start: 20181026
  2. KALBITOR [Suspect]
     Active Substance: ECALLANTIDE
     Indication: Immune system disorder
     Dosage: 30 MILLIGRAM
     Route: 058
     Dates: start: 20190403
  3. KALBITOR [Suspect]
     Active Substance: ECALLANTIDE
     Dosage: 30 MILLIGRAM
     Route: 058
     Dates: start: 20190419
  4. KALBITOR [Suspect]
     Active Substance: ECALLANTIDE
     Dosage: 30 MILLIGRAM
     Route: 058
     Dates: start: 20220828, end: 20220902
  5. KALBITOR [Suspect]
     Active Substance: ECALLANTIDE
     Dosage: 30 MILLIGRAM
     Route: 058
     Dates: start: 20220909
  6. SODIUM CHLORIDE [Concomitant]
     Active Substance: SODIUM CHLORIDE
     Dosage: UNK

REACTIONS (16)
  - Diverticulitis [Unknown]
  - Intervertebral disc disorder [Unknown]
  - Cataract [Unknown]
  - Injection site mass [Recovered/Resolved]
  - Back pain [Recovered/Resolved]
  - Injection site pain [Recovered/Resolved]
  - Injection site erythema [Recovering/Resolving]
  - Fatigue [Unknown]
  - Weight decreased [Unknown]
  - Feeding disorder [Unknown]
  - Illness [Unknown]
  - Drug ineffective [Unknown]
  - Weight increased [Unknown]
  - Fall [Unknown]
  - Concussion [Unknown]
  - Hereditary angioedema [Not Recovered/Not Resolved]

NARRATIVE: CASE EVENT DATE: 20181106
